FAERS Safety Report 7523630-7 (Version None)
Quarter: 2011Q2

REPORT INFORMATION
  Report Type: 
  Country: None (occurrence: None)
  Receive Date: 20110603
  Receipt Date: 20110525
  Transmission Date: 20111010
  Serious: Yes (Hospitalization)
  Sender: FDA-Public Use
  Company Number: BR-MEDIMMUNE-MEDI-0013251

PATIENT
  Sex: Female
  Weight: 7.9 kg

DRUGS (6)
  1. FLUTICASONE PROPIONATE [Concomitant]
     Dosage: 4 PUFF (2 PUFF, 1 IN 12 HR)
     Route: 055
     Dates: start: 20100101
  2. SYNAGIS [Suspect]
     Route: 030
     Dates: start: 20110525, end: 20110525
  3. FERROUS SULFATE TAB [Concomitant]
     Route: 048
     Dates: start: 20100101
  4. SALBUTAMOL SULFATE [Concomitant]
     Dosage: 2 PUFF (1 PUFF, 1 IN 12 HR)
     Route: 055
     Dates: start: 20100101
  5. SYNAGIS [Suspect]
     Indication: BRONCHOPULMONARY DYSPLASIA
     Route: 030
     Dates: start: 20100401
  6. VITAMIN AD [Concomitant]
     Route: 048
     Dates: start: 20100101

REACTIONS (7)
  - BRONCHOPULMONARY DYSPLASIA [None]
  - INFLUENZA [None]
  - RHINITIS [None]
  - INCREASED BRONCHIAL SECRETION [None]
  - DYSPNOEA [None]
  - PYREXIA [None]
  - NASOPHARYNGITIS [None]
